FAERS Safety Report 25224587 (Version 1)
Quarter: 2025Q2

REPORT INFORMATION
  Report Type: Spontaneous
  Country: US (occurrence: US)
  Receive Date: 20250422
  Receipt Date: 20250422
  Transmission Date: 20250717
  Serious: Yes (Life-Threatening, Hospitalization)
  Sender: AUROBINDO
  Company Number: US-MLMSERVICE-20250331-PI462171-00201-1

PATIENT
  Age: 75 Year
  Sex: Male

DRUGS (2)
  1. LIDOCAINE [Suspect]
     Active Substance: LIDOCAINE
     Indication: Product used for unknown indication
     Route: 061
  2. NITRIC OXIDE [Suspect]
     Active Substance: NITRIC OXIDE
     Indication: Product used for unknown indication

REACTIONS (1)
  - Methaemoglobinaemia [Recovered/Resolved]
